FAERS Safety Report 8538615-1 (Version None)
Quarter: 2012Q3

REPORT INFORMATION
  Report Type: 
  Country: None (occurrence: None)
  Receive Date: 20120718
  Receipt Date: 20120718
  Transmission Date: 20120928
  Serious: No
  Sender: FDA-Public Use
  Company Number: None

PATIENT
  Sex: Female
  Weight: 88.905 kg

DRUGS (1)
  1. HCG MAXIMUM STRENGTH [Suspect]
     Indication: OBESITY
     Dosage: 15 DROPS 3X/DAY
     Dates: start: 20120623, end: 20120701

REACTIONS (4)
  - FEELING ABNORMAL [None]
  - PRESYNCOPE [None]
  - DIZZINESS [None]
  - HEART RATE IRREGULAR [None]
